FAERS Safety Report 10515981 (Version 1)
Quarter: 2014Q4

REPORT INFORMATION
  Report Type: Spontaneous
  Country: US (occurrence: None)
  Receive Date: 20141001
  Receipt Date: 20141001
  Transmission Date: 20150528
  Serious: Yes (Other)
  Sender: FDA-Public Use
  Company Number: 2014005322

PATIENT
  Age: 81 Year
  Sex: Female
  Weight: 70.3 kg

DRUGS (2)
  1. VIMPAT [Suspect]
     Active Substance: LACOSAMIDE
     Indication: PARTIAL SEIZURES
     Dosage: ONCE DAILY
     Dates: start: 20140529, end: 2014
  2. WARFARIN (WARFARIN SODIUM) [Concomitant]

REACTIONS (3)
  - Atrial fibrillation [None]
  - International normalised ratio decreased [None]
  - Inappropriate schedule of drug administration [None]

NARRATIVE: CASE EVENT DATE: 20140529
